FAERS Safety Report 9904610 (Version 13)
Quarter: 2018Q3

REPORT INFORMATION
  Report Type: Report from Study
  Country: CH (occurrence: CH)
  Receive Date: 20140218
  Receipt Date: 20180709
  Transmission Date: 20181010
  Serious: Yes (Hospitalization)
  Sender: FDA-Public Use
  Company Number: CH-ROCHE-1345522

PATIENT
  Age: 52 Year
  Sex: Male
  Weight: 82 kg

DRUGS (29)
  1. PARACETAMOL [Concomitant]
     Active Substance: ACETAMINOPHEN
     Route: 048
     Dates: start: 20140205, end: 20140205
  2. FRAGMIN [Concomitant]
     Active Substance: DALTEPARIN SODIUM
     Indication: PROPHYLAXIS
     Dosage: 5000 IE
     Route: 058
     Dates: start: 20140204, end: 20140205
  3. TEMESTA (SWITZERLAND) [Concomitant]
     Active Substance: LORAZEPAM
     Route: 048
     Dates: start: 20140207, end: 20140210
  4. SOLU?MEDROL [Concomitant]
     Active Substance: METHYLPREDNISOLONE SODIUM SUCCINATE
     Indication: PROPHYLAXIS
     Route: 042
     Dates: start: 20140203, end: 20140203
  5. RESYL [Concomitant]
     Indication: PROPHYLAXIS
     Route: 048
     Dates: start: 20140206, end: 20140207
  6. VALTREX [Concomitant]
     Active Substance: VALACYCLOVIR HYDROCHLORIDE
     Indication: PROPHYLAXIS
     Route: 048
     Dates: start: 20140128, end: 20140304
  7. ALLOPURINOL. [Concomitant]
     Active Substance: ALLOPURINOL
     Indication: PROPHYLAXIS
     Route: 048
     Dates: start: 20140128, end: 20140304
  8. PASPERTIN (SWITZERLAND) [Concomitant]
     Active Substance: METOCLOPRAMIDE HYDROCHLORIDE
     Indication: PROPHYLAXIS
     Route: 042
     Dates: start: 20140203, end: 20140203
  9. PERFALGAN [Concomitant]
     Active Substance: ACETAMINOPHEN
     Route: 042
     Dates: start: 20140205, end: 20140205
  10. PHENOBARBITAL. [Concomitant]
     Active Substance: PHENOBARBITAL
     Route: 065
     Dates: start: 20140204
  11. PARACETAMOL [Concomitant]
     Active Substance: ACETAMINOPHEN
     Route: 048
     Dates: start: 20140204, end: 20140204
  12. BACTRIM [Concomitant]
     Active Substance: SULFAMETHOXAZOLE\TRIMETHOPRIM
     Route: 048
     Dates: start: 20140203, end: 20140304
  13. ZOLPIDEM [Concomitant]
     Active Substance: ZOLPIDEM\ZOLPIDEM TARTRATE
     Route: 048
     Dates: start: 20140204, end: 20140205
  14. NOVALGIN (SWITZERLAND) [Concomitant]
     Active Substance: DIPYRONE
     Route: 048
     Dates: start: 20140204, end: 20140204
  15. NOVALGIN (SWITZERLAND) [Concomitant]
     Active Substance: DIPYRONE
     Route: 048
     Dates: start: 20140207, end: 20140209
  16. TAVEGYL [Concomitant]
     Active Substance: CLEMASTINE FUMARATE
     Route: 042
     Dates: start: 20140203, end: 20140203
  17. PASPERTIN (SWITZERLAND) [Concomitant]
     Active Substance: METOCLOPRAMIDE HYDROCHLORIDE
     Route: 048
     Dates: start: 20140210, end: 20140212
  18. SODIUM CHLORIDE. [Concomitant]
     Active Substance: SODIUM CHLORIDE
     Indication: PROPHYLAXIS
     Route: 042
     Dates: start: 20140203, end: 20140212
  19. BACTRIM [Concomitant]
     Active Substance: SULFAMETHOXAZOLE\TRIMETHOPRIM
     Indication: PROPHYLAXIS
     Route: 065
     Dates: start: 20140128, end: 20140304
  20. LUMINALE [Concomitant]
     Active Substance: PHENOBARBITAL
     Route: 048
     Dates: start: 2008
  21. PARACETAMOL [Concomitant]
     Active Substance: ACETAMINOPHEN
     Indication: PROPHYLAXIS
     Route: 048
     Dates: start: 20140203, end: 20140203
  22. ZOLPIDEM [Concomitant]
     Active Substance: ZOLPIDEM\ZOLPIDEM TARTRATE
     Route: 048
     Dates: start: 20140207, end: 20140207
  23. KYTRIL [Concomitant]
     Active Substance: GRANISETRON HYDROCHLORIDE
     Route: 048
     Dates: start: 20140205, end: 20140207
  24. LAXOBERON [Concomitant]
     Active Substance: SODIUM PICOSULFATE
     Dosage: 7.5 MG/ML
     Route: 048
     Dates: start: 20140210, end: 20140210
  25. SERESTA [Concomitant]
     Active Substance: OXAZEPAM
     Route: 048
     Dates: start: 20140209, end: 20140209
  26. PERFALGAN [Concomitant]
     Active Substance: ACETAMINOPHEN
     Route: 042
     Dates: start: 20140203, end: 20140203
  27. OBINUTUZUMAB. [Suspect]
     Active Substance: OBINUTUZUMAB
     Indication: CHRONIC LYMPHOCYTIC LEUKAEMIA
     Dosage: DOSE AS PER PROTOCOL: PARTICIPANTS WILL RECEIVE OBINUTUZUMAB 1000 MG IV INFUSION ON DAYS 1/2 (DOSE S
     Route: 042
     Dates: start: 20140203, end: 20140205
  28. TAVEGYL [Concomitant]
     Active Substance: CLEMASTINE FUMARATE
     Route: 042
     Dates: start: 20140205, end: 20140205
  29. PREDNISOLONE. [Concomitant]
     Active Substance: PREDNISOLONE
     Indication: PROPHYLAXIS
     Route: 048
     Dates: start: 20140205, end: 20140205

REACTIONS (2)
  - Hepatic enzyme increased [Recovered/Resolved]
  - Tumour lysis syndrome [Recovered/Resolved]

NARRATIVE: CASE EVENT DATE: 20140204
